FAERS Safety Report 7485118-1 (Version None)
Quarter: 2011Q2

REPORT INFORMATION
  Report Type: 
  Country: None (occurrence: None)
  Receive Date: 20110517
  Receipt Date: 20101117
  Transmission Date: 20111010
  Serious: No
  Sender: FDA-Public Use
  Company Number: US-BAYER-2010-005500

PATIENT
  Sex: Female
  Weight: 190 kg

DRUGS (5)
  1. LISINOPRIL [Concomitant]
     Indication: CARDIOVASCULAR EVENT PROPHYLAXIS
  2. ALEVE (CAPLET) [Suspect]
     Indication: PAIN IN EXTREMITY
     Route: 048
  3. SYNTHROID [Concomitant]
     Indication: THYROID DISORDER
  4. COUMADIN [Concomitant]
     Indication: PROPHYLAXIS
  5. LIPITOR [Concomitant]
     Indication: BLOOD CHOLESTEROL ABNORMAL

REACTIONS (2)
  - DYSPEPSIA [None]
  - RETCHING [None]
